FAERS Safety Report 10364222 (Version 3)
Quarter: 2015Q2

REPORT INFORMATION
  Report Type: Spontaneous
  Country: JP (occurrence: JP)
  Receive Date: 20140806
  Receipt Date: 20150626
  Transmission Date: 20150821
  Serious: Yes (Hospitalization, Other)
  Sender: FDA-Public Use
  Company Number: JP-UCBSA-2014004305

PATIENT
  Age: 60 Year
  Sex: Male

DRUGS (6)
  1. KEPPRA [Suspect]
     Active Substance: LEVETIRACETAM
     Indication: EPILEPSY
     Dosage: 500 MG, 2X/DAY (BID)
     Route: 048
     Dates: start: 20140222, end: 20140424
  2. KEPPRA [Suspect]
     Active Substance: LEVETIRACETAM
     Dosage: 250 MG, 4X/DAY (QID)
     Route: 048
     Dates: start: 20140425, end: 20140526
  3. FEROTYM [Concomitant]
     Active Substance: FERROUS CITRATE\SODIUM
     Dosage: 100 MG AT DAILY DOSE
     Route: 048
     Dates: start: 201402, end: 201404
  4. MAGMITT [Concomitant]
     Active Substance: MAGNESIUM OXIDE
     Dosage: 990 MG AT DAILY DOSE
     Route: 048
     Dates: start: 201402, end: 20140626
  5. LANSOPRAZOLE. [Concomitant]
     Active Substance: LANSOPRAZOLE
     Indication: SEIZURE
     Dosage: 30 MG AT DAILY DOSE
     Route: 048
     Dates: start: 201402
  6. EXCEGRAN [Suspect]
     Active Substance: ZONISAMIDE
     Dosage: 100 MG AT DAILY DOSE
     Route: 048
     Dates: start: 20130425, end: 20140529

REACTIONS (2)
  - Anaemia [Recovered/Resolved]
  - Seizure [Recovered/Resolved]

NARRATIVE: CASE EVENT DATE: 20140421
